FAERS Safety Report 18071623 (Version 1)
Quarter: 2020Q3

REPORT INFORMATION
  Report Type: Spontaneous
  Country: US (occurrence: US)
  Receive Date: 20200724
  Receipt Date: 20200724
  Transmission Date: 20201103
  Serious: Yes (Disabling, Other)
  Sender: FDA-Public Use
  Company Number: None

PATIENT
  Age: 92 Year
  Sex: Male

DRUGS (1)
  1. BEOVU [Suspect]
     Active Substance: BROLUCIZUMAB-DBLL
     Indication: NEOVASCULAR AGE-RELATED MACULAR DEGENERATION
     Dosage: ?          OTHER FREQUENCY:8 WEEKS;OTHER ROUTE:RIGHT EYE?
     Dates: start: 20200127, end: 20200702

REACTIONS (2)
  - Blindness [None]
  - Vasculitis [None]

NARRATIVE: CASE EVENT DATE: 20200702
